FAERS Safety Report 13733300 (Version 1)
Quarter: 2017Q3

REPORT INFORMATION
  Report Type: Spontaneous
  Country: US (occurrence: US)
  Receive Date: 20170707
  Receipt Date: 20170707
  Transmission Date: 20171127
  Serious: No
  Sender: FDA-Public Use
  Company Number: US-ROCHE-1314434

PATIENT
  Age: 65 Year
  Sex: Female

DRUGS (11)
  1. PEPCID [Concomitant]
     Active Substance: FAMOTIDINE
     Route: 065
     Dates: start: 20131107
  2. BENADRYL [Concomitant]
     Active Substance: DIPHENHYDRAMINE HYDROCHLORIDE
     Route: 065
     Dates: start: 20131107
  3. TAXOTERE [Concomitant]
     Active Substance: DOCETAXEL
     Indication: BREAST CANCER
     Route: 065
     Dates: start: 20131107
  4. ZOFRAN [Concomitant]
     Active Substance: ONDANSETRON HYDROCHLORIDE
     Route: 065
     Dates: start: 20131107
  5. ACETAMINOPHEN. [Concomitant]
     Active Substance: ACETAMINOPHEN
     Route: 065
     Dates: start: 20131107
  6. HERCEPTIN [Suspect]
     Active Substance: TRASTUZUMAB
     Indication: BREAST CANCER
     Route: 065
  7. CARBOPLATIN. [Concomitant]
     Active Substance: CARBOPLATIN
     Indication: BREAST CANCER
     Route: 065
     Dates: start: 20131107
  8. METFORMIN [Concomitant]
     Active Substance: METFORMIN HYDROCHLORIDE
     Indication: DIABETES MELLITUS
     Route: 065
  9. PERJETA [Suspect]
     Active Substance: PERTUZUMAB
     Indication: BREAST CANCER
     Dosage: ALL FOUR SAME DAY, 3 WEEKS APART, 6 WEEKS TOTAL
     Route: 065
  10. DEXAMETHASONE. [Concomitant]
     Active Substance: DEXAMETHASONE
     Route: 065
     Dates: start: 20131107
  11. NEULASTA [Concomitant]
     Active Substance: PEGFILGRASTIM

REACTIONS (20)
  - Epistaxis [Unknown]
  - Paraesthesia [Unknown]
  - Bone pain [Recovered/Resolved]
  - Fatigue [Unknown]
  - Rhinorrhoea [Unknown]
  - White blood cell count decreased [Unknown]
  - Nausea [Unknown]
  - Hyperchlorhydria [Unknown]
  - Genital erythema [Unknown]
  - Headache [Not Recovered/Not Resolved]
  - Diarrhoea [Unknown]
  - Erythema [Recovered/Resolved]
  - Rash macular [Not Recovered/Not Resolved]
  - Gastroenteritis viral [Unknown]
  - Oropharyngeal pain [Unknown]
  - Oral pain [Unknown]
  - Alopecia [Unknown]
  - Furuncle [Not Recovered/Not Resolved]
  - Blister [Unknown]
  - Pain of skin [Unknown]

NARRATIVE: CASE EVENT DATE: 201311
